FAERS Safety Report 14672703 (Version 1)
Quarter: 2018Q1

REPORT INFORMATION
  Report Type: Spontaneous
  Country: IT (occurrence: IT)
  Receive Date: 20180323
  Receipt Date: 20180323
  Transmission Date: 20180509
  Serious: Yes (Life-Threatening, Other)
  Sender: FDA-Public Use
  Company Number: IT-ACCORD-064690

PATIENT
  Age: 87 Year
  Sex: Male

DRUGS (15)
  1. RITUXIMAB. [Suspect]
     Active Substance: RITUXIMAB
     Indication: PRIMARY CARDIAC LYMPHOMA
     Dosage: REPEATED WITH RITUXIMAB AFTER THREE WEEKS
  2. CYCLOPHOSPHAMIDE/CYCLOPHOSPHAMIDE MONOHYDRATE [Suspect]
     Active Substance: CYCLOPHOSPHAMIDE
     Indication: DIFFUSE LARGE B-CELL LYMPHOMA
  3. MITOXANTRONE [Suspect]
     Active Substance: MITOXANTRONE HYDROCHLORIDE
     Indication: DIFFUSE LARGE B-CELL LYMPHOMA
     Dosage: DOSES WERE SLOWLY REDUCED
  4. ETOPOSIDE. [Suspect]
     Active Substance: ETOPOSIDE
     Indication: PRIMARY CARDIAC LYMPHOMA
     Dosage: DOSES WERE SLOWLY REDUCED
  5. PREDNISONE. [Suspect]
     Active Substance: PREDNISONE
     Indication: PRIMARY CARDIAC LYMPHOMA
     Dosage: DOSES WERE SLOWLY REDUCED
  6. MITOXANTRONE [Suspect]
     Active Substance: MITOXANTRONE HYDROCHLORIDE
     Indication: DIFFUSE LARGE B-CELL LYMPHOMA
  7. VINCRISTINE [Suspect]
     Active Substance: VINCRISTINE
     Indication: PRIMARY CARDIAC LYMPHOMA
  8. SULFAMETHOXAZOLE/TRIMETHOPRIM [Concomitant]
     Indication: ANTIFUNGAL PROPHYLAXIS
  9. VINCRISTINE [Suspect]
     Active Substance: VINCRISTINE
     Indication: PRIMARY CARDIAC LYMPHOMA
     Dosage: DOSES WERE SLOWLY REDUCED
  10. CYCLOPHOSPHAMIDE. [Suspect]
     Active Substance: CYCLOPHOSPHAMIDE
     Indication: DIFFUSE LARGE B-CELL LYMPHOMA
     Dosage: DOSES WERE SLOWLY REDUCED
  11. PREDNISONE. [Suspect]
     Active Substance: PREDNISONE
     Indication: PRIMARY CARDIAC LYMPHOMA
  12. GRANULOCYTE COLONY STIMULATING [Concomitant]
     Active Substance: GRANULOCYTE COLONY-STIMULATING FACTOR NOS
  13. RITUXIMAB. [Suspect]
     Active Substance: RITUXIMAB
     Indication: PRIMARY CARDIAC LYMPHOMA
     Dosage: DOSES WERE SLOWLY REDUCED
  14. BLEOMYCIN [Suspect]
     Active Substance: BLEOMYCIN SULFATE
     Indication: PRIMARY CARDIAC LYMPHOMA
  15. ETOPOSIDE. [Suspect]
     Active Substance: ETOPOSIDE
     Indication: PRIMARY CARDIAC LYMPHOMA

REACTIONS (2)
  - Hepatotoxicity [Unknown]
  - Klebsiella sepsis [Unknown]
